FAERS Safety Report 6610898-4 (Version None)
Quarter: 2010Q1

REPORT INFORMATION
  Report Type: 
  Country: None (occurrence: None)
  Receive Date: 20100219
  Receipt Date: 20100203
  Transmission Date: 20100710
  Serious: Yes (Other)
  Sender: FDA-Public Use
  Company Number: 09-AUR-10490

PATIENT
  Age: 34 Year
  Sex: Female

DRUGS (2)
  1. AMOXICILLIN [Suspect]
     Indication: LYMPHADENOPATHY
     Dosage: 1500MG, TID, ORAL
     Route: 048
     Dates: start: 20090220, end: 20090222
  2. TRINOVUM [Concomitant]

REACTIONS (2)
  - ALOPECIA [None]
  - DRUG HYPERSENSITIVITY [None]
